FAERS Safety Report 8381953-6 (Version None)
Quarter: 2012Q2

REPORT INFORMATION
  Report Type: 
  Country: None (occurrence: None)
  Receive Date: 20120524
  Receipt Date: 20120514
  Transmission Date: 20120825
  Serious: Yes (Other)
  Sender: FDA-Public Use
  Company Number: LT-VERTEX PHARMACEUTICALS INC.-000000000000000655

PATIENT
  Sex: Female
  Weight: 83 kg

DRUGS (3)
  1. PEG-INTRON [Concomitant]
     Indication: HEPATITIS C
     Dates: start: 20120326, end: 20120418
  2. TELAPREVIR [Suspect]
     Indication: HEPATITIS C
     Dosage: DOSAGE FORM: TABLET
     Route: 048
     Dates: start: 20120326, end: 20120415
  3. REBETOL [Concomitant]
     Indication: HEPATITIS C
     Dates: start: 20120326, end: 20120418

REACTIONS (1)
  - RASH GENERALISED [None]
